FAERS Safety Report 6480723-3 (Version None)
Quarter: 2009Q4

REPORT INFORMATION
  Report Type: 
  Country: None (occurrence: None)
  Receive Date: 20091208
  Receipt Date: 20091203
  Transmission Date: 20100525
  Serious: Yes (Hospitalization)
  Sender: FDA-Public Use
  Company Number: US-BRISTOL-MYERS SQUIBB COMPANY-14880033

PATIENT
  Age: 50 Year
  Sex: Female
  Weight: 113 kg

DRUGS (17)
  1. ORENCIA [Suspect]
     Indication: RHEUMATOID ARTHRITIS
     Dates: start: 20090601
  2. ATENOLOL [Concomitant]
  3. LASIX [Concomitant]
  4. LEVOXYL [Concomitant]
  5. POTASSIUM [Concomitant]
  6. FOLIC ACID [Concomitant]
  7. METHOTREXATE [Concomitant]
  8. CALCIUM + VITAMIN D [Concomitant]
  9. EFFEXOR [Concomitant]
  10. LOVASTATIN [Concomitant]
  11. DOXEPIN HCL [Concomitant]
  12. PROAIR HFA [Concomitant]
     Dosage: INHALER
     Route: 055
  13. SYMBICORT [Concomitant]
     Dosage: INHALER
     Route: 055
  14. LORAZEPAM [Concomitant]
  15. AVINZA [Concomitant]
  16. OXYCODONE [Concomitant]
  17. TYLENOL [Concomitant]

REACTIONS (2)
  - ASTHMA [None]
  - COUGH [None]
